FAERS Safety Report 14877605 (Version 1)
Quarter: 2018Q2

REPORT INFORMATION
  Report Type: Spontaneous
  Country: GB (occurrence: GB)
  Receive Date: 20180510
  Receipt Date: 20180510
  Transmission Date: 20180711
  Serious: Yes (Hospitalization, Other)
  Sender: FDA-Public Use
  Company Number: GB-BAUSCH-BL-2018-013542

PATIENT
  Age: 59 Year
  Sex: Male

DRUGS (37)
  1. POLYHEXAMETHYLENE BIGUANIDE HYDROCHLORIDE [Suspect]
     Active Substance: POLIHEXANIDE HYDROCHLORIDE
     Dosage: HOURLY DAYTIME ONLY
     Route: 065
  2. CHLORHEXIDINE [Suspect]
     Active Substance: CHLORHEXIDINE
     Route: 065
  3. HEXAMIDINE [Concomitant]
     Active Substance: HEXAMIDINE
     Dosage: 006 PERCENT, HOURLY DAY AND NIGHT
     Route: 065
  4. GENTAMICIN. [Concomitant]
     Active Substance: GENTAMICIN
     Indication: ACANTHAMOEBA KERATITIS
     Route: 065
  5. GENTAMICIN. [Concomitant]
     Active Substance: GENTAMICIN
     Dosage: HOURLY DAY AND NIGHT
     Route: 065
  6. VORICONAZOLE. [Suspect]
     Active Substance: VORICONAZOLE
     Indication: ACANTHAMOEBA KERATITIS
     Route: 065
  7. VORICONAZOLE. [Suspect]
     Active Substance: VORICONAZOLE
     Route: 065
  8. VORICONAZOLE. [Suspect]
     Active Substance: VORICONAZOLE
     Route: 050
  9. CHLORHEXIDINE [Suspect]
     Active Substance: CHLORHEXIDINE
     Dosage: 0.02 PERCENT, HOURLY DAY AND NIGHT
     Route: 065
  10. PRED FORTE [Concomitant]
     Active Substance: PREDNISOLONE ACETATE
     Indication: ACANTHAMOEBA KERATITIS
     Route: 065
  11. POLYHEXAMETHYLENE BIGUANIDE HYDROCHLORIDE [Suspect]
     Active Substance: POLIHEXANIDE HYDROCHLORIDE
     Indication: ACANTHAMOEBA KERATITIS
     Route: 065
  12. CHLORHEXIDINE [Suspect]
     Active Substance: CHLORHEXIDINE
     Indication: ACANTHAMOEBA KERATITIS
     Dosage: 2 HOURLY
     Route: 065
  13. METHYLPREDNISOLONE. [Concomitant]
     Active Substance: METHYLPREDNISOLONE
     Indication: ACANTHAMOEBA KERATITIS
     Route: 042
  14. POSACONAZOLE [Suspect]
     Active Substance: POSACONAZOLE
     Indication: ACANTHAMOEBA KERATITIS
     Dosage: 300 MG, BID, LOADING DOSE
     Route: 048
  15. PRED FORTE [Concomitant]
     Active Substance: PREDNISOLONE ACETATE
     Route: 065
  16. MILTEFOSINE [Concomitant]
     Active Substance: MILTEFOSINE
     Indication: PROPHYLAXIS
  17. DEXAMETHASONE. [Suspect]
     Active Substance: DEXAMETHASONE
     Route: 065
  18. POLYHEXAMETHYLENE BIGUANIDE HYDROCHLORIDE [Suspect]
     Active Substance: POLIHEXANIDE HYDROCHLORIDE
     Route: 065
  19. TACROLIMUS. [Concomitant]
     Active Substance: TACROLIMUS
     Indication: TRANSPLANT FAILURE
     Route: 048
  20. HEXAMIDINE [Concomitant]
     Active Substance: HEXAMIDINE
     Route: 065
  21. HEXAMIDINE [Concomitant]
     Active Substance: HEXAMIDINE
     Route: 065
  22. HEXAMIDINE [Concomitant]
     Active Substance: HEXAMIDINE
     Dosage: HOURLY
     Route: 065
  23. LEVOFLOXACIN. [Concomitant]
     Active Substance: LEVOFLOXACIN
     Dosage: 0.5 PERCENT, (REDUCED TO HOURLY DAYTIME ONLY)
     Route: 065
  24. PREDNISOLONE. [Concomitant]
     Active Substance: PREDNISOLONE
     Indication: ACANTHAMOEBA KERATITIS
     Route: 065
  25. POLYHEXAMETHYLENE BIGUANIDE HYDROCHLORIDE [Suspect]
     Active Substance: POLIHEXANIDE HYDROCHLORIDE
     Dosage: TWO HOURLY DAY ONLY
     Route: 065
  26. TACROLIMUS. [Concomitant]
     Active Substance: TACROLIMUS
     Indication: PROPHYLAXIS
  27. IMIDAZOLE [Concomitant]
     Active Substance: IMIDAZOLE
     Indication: ACANTHAMOEBA KERATITIS
     Route: 065
  28. VORICONAZOLE. [Suspect]
     Active Substance: VORICONAZOLE
     Route: 065
  29. CHLORHEXIDINE [Suspect]
     Active Substance: CHLORHEXIDINE
     Dosage: DAY AND NIGHT
     Route: 065
  30. HEXAMIDINE [Concomitant]
     Active Substance: HEXAMIDINE
     Indication: ACANTHAMOEBA KERATITIS
     Route: 065
  31. LEVOFLOXACIN. [Concomitant]
     Active Substance: LEVOFLOXACIN
     Indication: ACANTHAMOEBA KERATITIS
     Dosage: 0.5 PERCENT HOURLY DAY AND NIGHT
     Route: 065
  32. DEXAMETHASONE. [Suspect]
     Active Substance: DEXAMETHASONE
     Indication: ACANTHAMOEBA KERATITIS
     Route: 065
  33. POLYHEXAMETHYLENE BIGUANIDE HYDROCHLORIDE [Suspect]
     Active Substance: POLIHEXANIDE HYDROCHLORIDE
     Dosage: HOURLY DAY AND NIGHT
  34. POSACONAZOLE [Suspect]
     Active Substance: POSACONAZOLE
     Route: 048
  35. LEVOFLOXACIN. [Concomitant]
     Active Substance: LEVOFLOXACIN
     Dosage: TWO HOURLY DAY ONLY
     Route: 065
  36. CEFUROXIME. [Concomitant]
     Active Substance: CEFUROXIME
     Indication: ACANTHAMOEBA KERATITIS
     Route: 065
  37. MILTEFOSINE [Concomitant]
     Active Substance: MILTEFOSINE
     Indication: ACANTHAMOEBA KERATITIS
     Dosage: 2.5 MG/KG/DAY
     Route: 048

REACTIONS (4)
  - Condition aggravated [Unknown]
  - Acanthamoeba keratitis [Not Recovered/Not Resolved]
  - Drug ineffective for unapproved indication [Unknown]
  - Adverse drug reaction [Unknown]
